FAERS Safety Report 6527909-7 (Version None)
Quarter: 2010Q1

REPORT INFORMATION
  Report Type: 
  Country: None (occurrence: None)
  Receive Date: 20100106
  Receipt Date: 20091228
  Transmission Date: 20100710
  Serious: Yes (Hospitalization, Other)
  Sender: FDA-Public Use
  Company Number: US-BAYER-200917906BCC

PATIENT
  Age: 22 Year
  Sex: Female

DRUGS (5)
  1. RID MOUSSE [Suspect]
     Indication: LICE INFESTATION
     Dosage: ACCIDENTALLY GOT SHAMPOO IN HER EYES
     Route: 047
     Dates: start: 20091227
  2. SEROQUEL XR [Concomitant]
     Route: 065
  3. ADDERALL XR 10 [Concomitant]
     Route: 065
  4. VALIUM [Concomitant]
     Route: 065
  5. TOPAMAX [Concomitant]
     Route: 065

REACTIONS (6)
  - ASTHENOPIA [None]
  - EYE IRRITATION [None]
  - EYE PAIN [None]
  - OCULAR HYPERAEMIA [None]
  - PUNCTATE KERATITIS [None]
  - VISION BLURRED [None]
